FAERS Safety Report 17540206 (Version 1)
Quarter: 2020Q1

REPORT INFORMATION
  Report Type: Spontaneous
  Country: IT (occurrence: IT)
  Receive Date: 20200313
  Receipt Date: 20200313
  Transmission Date: 20200409
  Serious: Yes (Hospitalization)
  Sender: FDA-Public Use
  Company Number: NVSC2020IT071843

PATIENT
  Age: 30 Year
  Sex: Male

DRUGS (1)
  1. TEGRETOL [Suspect]
     Active Substance: CARBAMAZEPINE
     Indication: PRODUCT ADMINISTRATION ERROR
     Dosage: 1600 MG, QD
     Route: 048
     Dates: start: 20190911, end: 20191114

REACTIONS (2)
  - Balance disorder [Unknown]
  - Medication error [Unknown]

NARRATIVE: CASE EVENT DATE: 20191114
